FAERS Safety Report 7905012-9 (Version None)
Quarter: 2011Q4

REPORT INFORMATION
  Report Type: 
  Country: None (occurrence: None)
  Receive Date: 20111109
  Receipt Date: 20111031
  Transmission Date: 20120403
  Serious: Yes (Hospitalization, Other)
  Sender: FDA-Public Use
  Company Number: US-BAYER-2010-002707

PATIENT
  Age: 39 Year
  Sex: Female
  Weight: 56.689 kg

DRUGS (1)
  1. YASMIN [Suspect]
     Indication: CONTRACEPTION
     Dosage: UNK
     Dates: start: 20040201, end: 20070601

REACTIONS (3)
  - CHOLECYSTITIS CHRONIC [None]
  - CHEST PAIN [None]
  - CHOLELITHIASIS [None]
